FAERS Safety Report 20473195 (Version 2)
Quarter: 2022Q1

REPORT INFORMATION
  Report Type: Report from Study
  Country: CA (occurrence: CA)
  Receive Date: 20220215
  Receipt Date: 20220223
  Transmission Date: 20220424
  Serious: Yes (Other)
  Sender: FDA-Public Use
  Company Number: CA-PUMA BIOTECHNOLOGY, INC.-2022-PUM-CA000191

PATIENT

DRUGS (1)
  1. NERLYNX [Suspect]
     Active Substance: NERATINIB
     Indication: HER2 positive breast cancer
     Dosage: 240 MG, DAILY
     Route: 048
     Dates: start: 20220131, end: 20220204

REACTIONS (4)
  - Diarrhoea [Unknown]
  - Asthenia [Unknown]
  - Bedridden [Unknown]
  - Dehydration [Unknown]

NARRATIVE: CASE EVENT DATE: 20220131
